FAERS Safety Report 15869396 (Version 1)
Quarter: 2019Q1

REPORT INFORMATION
  Report Type: Spontaneous
  Country: US (occurrence: US)
  Receive Date: 20190125
  Receipt Date: 20190125
  Transmission Date: 20190417
  Serious: No
  Sender: FDA-Public Use
  Company Number: US-ACTELION-A-NJ2019-184790

PATIENT
  Age: 38 Year
  Sex: Male
  Weight: 90.7 kg

DRUGS (2)
  1. UPTRAVI [Suspect]
     Active Substance: SELEXIPAG
     Indication: PULMONARY HYPERTENSION
     Dosage: 200 MCG, BID
     Route: 048
  2. OPSUMIT [Suspect]
     Active Substance: MACITENTAN
     Indication: PULMONARY HYPERTENSION
     Dosage: 10 MG, UNK
     Route: 048

REACTIONS (7)
  - Treatment noncompliance [Unknown]
  - Tourette^s disorder [Unknown]
  - Tongue biting [Unknown]
  - Affective disorder [Unknown]
  - Muscle twitching [Unknown]
  - Irritability [Unknown]
  - Dyspnoea [Unknown]
